FAERS Safety Report 20443737 (Version 1)
Quarter: 2022Q1

REPORT INFORMATION
  Report Type: Spontaneous
  Country: CN (occurrence: CN)
  Receive Date: 20220208
  Receipt Date: 20220208
  Transmission Date: 20220423
  Serious: Yes (Hospitalization)
  Sender: FDA-Public Use
  Company Number: CN-PFIZER INC-202200157736

PATIENT
  Age: 5 Month
  Sex: Male
  Weight: 9.9 kg

DRUGS (1)
  1. AZITHROMYCIN [Suspect]
     Active Substance: AZITHROMYCIN
     Indication: Upper respiratory tract infection
     Dosage: 0.1 G, 1X/DAY
     Route: 048
     Dates: start: 20220117, end: 20220118

REACTIONS (4)
  - Erythema [Recovering/Resolving]
  - Skin swelling [Recovering/Resolving]
  - Pruritus [Recovering/Resolving]
  - Rash erythematous [Recovering/Resolving]

NARRATIVE: CASE EVENT DATE: 20220117
